FAERS Safety Report 13826146 (Version 2)
Quarter: 2017Q3

REPORT INFORMATION
  Report Type: Report from Study
  Country: CO (occurrence: CO)
  Receive Date: 20170802
  Receipt Date: 20170807
  Transmission Date: 20171127
  Serious: Yes (Death)
  Sender: FDA-Public Use
  Company Number: PHHY2017CO114011

PATIENT
  Age: 57 Year
  Sex: Male
  Weight: 75 kg

DRUGS (1)
  1. TASIGNA [Suspect]
     Active Substance: NILOTINIB
     Indication: CHRONIC MYELOID LEUKAEMIA
     Dosage: 200 MG, BID (TWICE A DAY)
     Route: 048
     Dates: start: 20170428

REACTIONS (1)
  - Death [Fatal]

NARRATIVE: CASE EVENT DATE: 20170630
